FAERS Safety Report 23436602 (Version 1)
Quarter: 2024Q1

REPORT INFORMATION
  Report Type: Report from Study
  Country: BR (occurrence: BR)
  Receive Date: 20240124
  Receipt Date: 20240124
  Transmission Date: 20240410
  Serious: Yes (Other)
  Sender: FDA-Public Use
  Company Number: BR-JNJFOC-20240148820

PATIENT
  Sex: Male

DRUGS (12)
  1. SIMPONI [Suspect]
     Active Substance: GOLIMUMAB
     Indication: Ankylosing spondylitis
     Dosage: LAST INFUSION WAS ON 22-DEC
     Route: 058
     Dates: start: 20231019
  2. SIMPONI [Suspect]
     Active Substance: GOLIMUMAB
  3. LOSARTAN [Concomitant]
     Active Substance: LOSARTAN
     Indication: Hypertension
     Route: 065
  4. GLIFAGE [Concomitant]
     Active Substance: METFORMIN HYDROCHLORIDE
     Indication: Product used for unknown indication
     Dosage: 150
     Route: 065
  5. DUOFLAM [BETAMETHASONE DIPROPIONATE;BETAMETHASONE SODIUM PHOSPHATE] [Concomitant]
     Indication: Product used for unknown indication
     Route: 065
  6. BUTYLSCOPOLAMINE BROMIDE [Concomitant]
     Active Substance: BUTYLSCOPOLAMINE BROMIDE
     Indication: Pain
     Route: 065
  7. DURVALUMAB [Concomitant]
     Active Substance: DURVALUMAB
     Indication: Product used for unknown indication
     Route: 065
  8. COQUES [Concomitant]
     Indication: Product used for unknown indication
     Route: 065
  9. AZULFIDINE [Concomitant]
     Active Substance: SULFASALAZINE
     Indication: Product used for unknown indication
     Route: 065
  10. CYCLOBENZAPRINE [Concomitant]
     Active Substance: CYCLOBENZAPRINE
     Indication: Product used for unknown indication
     Route: 065
  11. RISPERIDONE [Concomitant]
     Active Substance: RISPERIDONE
     Indication: Product used for unknown indication
     Route: 065
  12. SPIRONOLACTONE [Concomitant]
     Active Substance: SPIRONOLACTONE
     Indication: Product used for unknown indication
     Route: 065

REACTIONS (8)
  - Diverticulitis [Unknown]
  - Ankylosing spondylitis [Recovering/Resolving]
  - Memory impairment [Unknown]
  - Visual impairment [Unknown]
  - Gastritis [Unknown]
  - Anxiety [Unknown]
  - Nausea [Unknown]
  - Dizziness [Unknown]
